FAERS Safety Report 7475648-0 (Version None)
Quarter: 2011Q2

REPORT INFORMATION
  Report Type: 
  Country: None (occurrence: None)
  Receive Date: 20110512
  Receipt Date: 20110506
  Transmission Date: 20111010
  Serious: Yes (Death, Hospitalization)
  Sender: FDA-Public Use
  Company Number: MX-SANOFI-AVENTIS-2011SA028043

PATIENT
  Age: 83 Year
  Sex: Male

DRUGS (2)
  1. ALFUZOSIN HYDROCHLORIDE [Suspect]
     Indication: BENIGN PROSTATIC HYPERPLASIA
     Route: 048
     Dates: start: 20090101, end: 20100327
  2. CAPTOPRIL [Concomitant]
     Route: 048
     Dates: end: 20100327

REACTIONS (2)
  - CARDIAC ARREST [None]
  - LUNG DISORDER [None]
